FAERS Safety Report 5048498-2 (Version None)
Quarter: 2006Q3

REPORT INFORMATION
  Report Type: 
  Country: None (occurrence: None)
  Receive Date: 20060705
  Receipt Date: 20060619
  Transmission Date: 20061208
  Serious: Yes (Hospitalization)
  Sender: FDA-Public Use
  Company Number: PAR_0679_2006

PATIENT
  Age: 17 Year
  Sex: Female

DRUGS (5)
  1. ISOPTIN [Suspect]
     Indication: OVERDOSE
     Dosage: 2400 MG ONCE PO
     Route: 048
     Dates: start: 20060529, end: 20060529
  2. ISOPTIN [Suspect]
     Indication: SUICIDE ATTEMPT
     Dosage: 2400 MG ONCE PO
     Route: 048
     Dates: start: 20060529, end: 20060529
  3. ALCOHOLIC FOOD [Suspect]
     Indication: SUICIDE ATTEMPT
     Dosage: DF ONCE PO
     Route: 048
  4. AXURA [Suspect]
     Indication: OVERDOSE
     Dosage: 100 MG ONCE PO
     Route: 048
     Dates: start: 20060529, end: 20060529
  5. AXURA [Suspect]
     Indication: SUICIDE ATTEMPT
     Dosage: 100 MG ONCE PO
     Route: 048
     Dates: start: 20060529, end: 20060529

REACTIONS (6)
  - ELECTROCARDIOGRAM CHANGE [None]
  - GENERAL PHYSICAL HEALTH DETERIORATION [None]
  - MENTAL IMPAIRMENT [None]
  - OVERDOSE [None]
  - SUICIDE ATTEMPT [None]
  - VOMITING [None]
